FAERS Safety Report 4262250-7 (Version None)
Quarter: 2004Q1

REPORT INFORMATION
  Report Type: 
  Country: None (occurrence: None)
  Receive Date: 20040102
  Receipt Date: 20030312
  Transmission Date: 20041129
  Serious: Yes (Hospitalization)
  Sender: FDA-Public Use
  Company Number: ES-ROCHE-333615

PATIENT
  Age: 35 Year
  Sex: Male
  Weight: 60 kg

DRUGS (11)
  1. ENFUVIRTIDE [Suspect]
     Indication: HIV INFECTION
     Route: 058
     Dates: start: 20011004, end: 20030311
  2. ENFUVIRTIDE [Suspect]
     Route: 058
     Dates: start: 20030323, end: 20030701
  3. ENFUVIRTIDE [Suspect]
     Route: 058
     Dates: start: 20031107
  4. STAVUDINE [Suspect]
     Indication: DRUG USE FOR UNKNOWN INDICATION
     Route: 065
     Dates: start: 20011004, end: 20030311
  5. DIDANOSINE [Suspect]
     Indication: DRUG USE FOR UNKNOWN INDICATION
     Route: 065
     Dates: start: 20011004, end: 20030311
  6. DIDANOSINE [Suspect]
     Route: 065
     Dates: start: 20030323, end: 20030701
  7. LOPINAVIR/RITONAVIR [Suspect]
     Indication: DRUG USE FOR UNKNOWN INDICATION
     Route: 065
     Dates: start: 20011004, end: 20030311
  8. LOPINAVIR/RITONAVIR [Suspect]
     Route: 065
     Dates: start: 20030323, end: 20030701
  9. AMPRENAVIR [Suspect]
     Indication: DRUG USE FOR UNKNOWN INDICATION
     Route: 065
     Dates: start: 20011004, end: 20030311
  10. AMPRENAVIR [Suspect]
     Route: 065
     Dates: start: 20030323, end: 20030701
  11. TENOFOVIR [Concomitant]
     Dates: start: 20030323, end: 20030701

REACTIONS (8)
  - ASCITES [None]
  - BLOOD BICARBONATE DECREASED [None]
  - HEPATIC CIRRHOSIS [None]
  - HEPATIC FAILURE [None]
  - HEPATITIS C [None]
  - HEPATOMEGALY [None]
  - PANCREATITIS ACUTE [None]
  - PNEUMONIA [None]
